FAERS Safety Report 7568888-3 (Version None)
Quarter: 2011Q2

REPORT INFORMATION
  Report Type: 
  Country: None (occurrence: None)
  Receive Date: 20110623
  Receipt Date: 20110620
  Transmission Date: 20111010
  Serious: Yes (Hospitalization, Other)
  Sender: FDA-Public Use
  Company Number: US-PFIZER INC-2011102427

PATIENT
  Sex: Male

DRUGS (7)
  1. SIMVASTATIN [Concomitant]
     Indication: BLOOD CHOLESTEROL INCREASED
  2. METFORMIN [Concomitant]
     Indication: BLOOD CHOLESTEROL INCREASED
  3. ACETYLSALICYLIC ACID SRT [Suspect]
     Indication: BLOOD CHOLESTEROL INCREASED
  4. METFORMIN [Concomitant]
     Indication: TYPE 2 DIABETES MELLITUS
     Dosage: 850 MG, UNK
  5. ACETYLSALICYLIC ACID SRT [Suspect]
     Indication: TYPE 2 DIABETES MELLITUS
     Dosage: 81 MG, UNK
     Dates: end: 20110405
  6. CELEBREX [Suspect]
     Indication: WHIPLASH INJURY
     Dosage: 400 MG, 1X/DAY
     Route: 048
     Dates: start: 20110305, end: 20110315
  7. SIMVASTATIN [Concomitant]
     Indication: TYPE 2 DIABETES MELLITUS
     Dosage: 20 MG, UNK

REACTIONS (1)
  - GASTROINTESTINAL HAEMORRHAGE [None]
